FAERS Safety Report 11870819 (Version 2)
Quarter: 2016Q2

REPORT INFORMATION
  Report Type: Spontaneous
  Country: US (occurrence: US)
  Receive Date: 20151228
  Receipt Date: 20160531
  Transmission Date: 20160815
  Serious: No
  Sender: FDA-Public Use
  Company Number: US-APOTEX-2015AP014408

PATIENT
  Sex: Male

DRUGS (2)
  1. PAXIL [Suspect]
     Active Substance: PAROXETINE HYDROCHLORIDE
     Indication: PRODUCT USED FOR UNKNOWN INDICATION
     Dosage: 25 MG, UNK
     Route: 065
  2. PAROXETINE HYDROCHLORIDE. [Suspect]
     Active Substance: PAROXETINE HYDROCHLORIDE
     Indication: PRODUCT USED FOR UNKNOWN INDICATION
     Dosage: 30 MG, UNK
     Route: 065

REACTIONS (10)
  - Erectile dysfunction [Not Recovered/Not Resolved]
  - Dizziness [Not Recovered/Not Resolved]
  - Panic attack [Not Recovered/Not Resolved]
  - Aggression [Not Recovered/Not Resolved]
  - Muscle twitching [Not Recovered/Not Resolved]
  - Tremor [Not Recovered/Not Resolved]
  - Amnesia [Not Recovered/Not Resolved]
  - Drug withdrawal syndrome [Not Recovered/Not Resolved]
  - Semenuria [Not Recovered/Not Resolved]
  - Anxiety [Not Recovered/Not Resolved]
